FAERS Safety Report 26109826 (Version 1)
Quarter: 2025Q4

REPORT INFORMATION
  Report Type: Spontaneous
  Country: US (occurrence: US)
  Receive Date: 20251201
  Receipt Date: 20251201
  Transmission Date: 20260118
  Serious: Yes (Hospitalization)
  Sender: CHIMERIX
  Company Number: US-CHIMERIX-US-CHI-25-000235

PATIENT
  Age: 54 Year
  Sex: Male

DRUGS (4)
  1. MODEYSO [Suspect]
     Active Substance: DORDAVIPRONE
     Indication: Brain stem glioma
     Dosage: 625 MILLIGRAM, WEEKLY
     Route: 048
     Dates: start: 20250826, end: 20250902
  2. MODEYSO [Suspect]
     Active Substance: DORDAVIPRONE
     Dosage: 625 MILLIGRAM, WEEKLY
     Route: 048
     Dates: start: 20250919
  3. DEXAMETHASONE [Concomitant]
     Active Substance: DEXAMETHASONE
     Indication: Brain oedema
     Dosage: 2 MILLIGRAM, QD
  4. DEXAMETHASONE [Concomitant]
     Active Substance: DEXAMETHASONE
     Dosage: UNK

REACTIONS (1)
  - Hydrocephalus [Recovered/Resolved]

NARRATIVE: CASE EVENT DATE: 20250903
